FAERS Safety Report 6601024-6 (Version None)
Quarter: 2010Q1

REPORT INFORMATION
  Report Type: 
  Country: None (occurrence: None)
  Receive Date: 20100225
  Receipt Date: 20100210
  Transmission Date: 20100710
  Serious: Yes (Other)
  Sender: FDA-Public Use
  Company Number: DK-BAYER-201015476GPV

PATIENT
  Age: 51 Year
  Sex: Female

DRUGS (1)
  1. MIRENA [Suspect]
     Indication: DRUG USE FOR UNKNOWN INDICATION
     Route: 015
     Dates: start: 20100125, end: 20100209

REACTIONS (3)
  - BLOOD PRESSURE INCREASED [None]
  - HYPERSENSITIVITY [None]
  - RASH MACULAR [None]
